FAERS Safety Report 11319476 (Version 2)
Quarter: 2015Q3

REPORT INFORMATION
  Report Type: Spontaneous
  Country: BE (occurrence: None)
  Receive Date: 20150727
  Receipt Date: 20150804
  Transmission Date: 20151125
  Serious: Yes (Hospitalization)
  Sender: FDA-Public Use
  Company Number: UCM201507-000510

PATIENT
  Age: 58 Year
  Sex: Female
  Weight: 64 kg

DRUGS (3)
  1. INSULIN [Concomitant]
     Active Substance: INSULIN NOS
  2. AMLODIPINE [Suspect]
     Active Substance: AMLODIPINE BESYLATE
     Indication: HYPERTENSION
     Route: 048
  3. VALSARTAN (VALSARTAN) [Suspect]
     Active Substance: VALSARTAN
     Indication: HYPERTENSION
     Route: 048

REACTIONS (10)
  - Shock [None]
  - Hyperglycaemia [None]
  - Blood glucose decreased [None]
  - Acute kidney injury [None]
  - Electrocardiogram QT prolonged [None]
  - Metabolic acidosis [None]
  - Tachycardia [None]
  - Oliguria [None]
  - Blood lactic acid increased [None]
  - Intentional overdose [None]
